FAERS Safety Report 18322665 (Version 1)
Quarter: 2020Q3

REPORT INFORMATION
  Report Type: Report from Study
  Country: FR (occurrence: FR)
  Receive Date: 20200928
  Receipt Date: 20200928
  Transmission Date: 20201103
  Serious: No
  Sender: FDA-Public Use
  Company Number: FR-JNJFOC-20200930616

PATIENT

DRUGS (3)
  1. EPITOMAX [Suspect]
     Active Substance: TOPIRAMATE
     Route: 048
  2. EPITOMAX [Suspect]
     Active Substance: TOPIRAMATE
     Indication: PRADER-WILLI SYNDROME
     Route: 048
  3. EPITOMAX [Suspect]
     Active Substance: TOPIRAMATE
     Route: 048

REACTIONS (7)
  - Sinusitis [Unknown]
  - Hepatic function abnormal [Unknown]
  - Asthma [Unknown]
  - Intentional product use issue [Unknown]
  - Psychomotor skills impaired [Unknown]
  - Off label use [Unknown]
  - Hyperammonaemia [Unknown]
